FAERS Safety Report 12395969 (Version 3)
Quarter: 2017Q1

REPORT INFORMATION
  Report Type: Report from Study
  Country: US (occurrence: US)
  Receive Date: 20160523
  Receipt Date: 20170302
  Transmission Date: 20170428
  Serious: Yes (Other)
  Sender: FDA-Public Use
  Company Number: US-BIOGEN-2016BI00219634

PATIENT
  Sex: Male

DRUGS (3)
  1. TYSABRI [Suspect]
     Active Substance: NATALIZUMAB
     Route: 065
     Dates: start: 20170214
  2. METHADONE [Concomitant]
     Active Substance: METHADONE HYDROCHLORIDE
     Indication: PRODUCT USED FOR UNKNOWN INDICATION
     Route: 065
  3. TYSABRI [Suspect]
     Active Substance: NATALIZUMAB
     Indication: MULTIPLE SCLEROSIS
     Route: 042
     Dates: start: 20141006, end: 20160401

REACTIONS (18)
  - Blindness transient [Unknown]
  - Memory impairment [Unknown]
  - Anger [Unknown]
  - Abasia [Unknown]
  - Eye injury [Unknown]
  - Feeling abnormal [Unknown]
  - Hyperhidrosis [Unknown]
  - Aphasia [Unknown]
  - Inflammation [Unknown]
  - Optic neuritis [Unknown]
  - Vomiting [Unknown]
  - Multiple sclerosis relapse [Unknown]
  - Deafness transitory [Unknown]
  - Drug dependence [Unknown]
  - Cluster headache [Unknown]
  - Central nervous system lesion [Unknown]
  - Fear [Unknown]
  - Food allergy [Unknown]

NARRATIVE: CASE EVENT DATE: 2014
